FAERS Safety Report 15565411 (Version 1)
Quarter: 2018Q4

REPORT INFORMATION
  Report Type: Spontaneous
  Country: US (occurrence: US)
  Receive Date: 20181024
  Receipt Date: 20181024
  Transmission Date: 20190205
  Serious: Yes (Other)
  Sender: FDA-Public Use
  Company Number: None

PATIENT
  Age: 56 Year
  Sex: Female
  Weight: 68.1 kg

DRUGS (18)
  1. KCL [Concomitant]
     Active Substance: POTASSIUM CHLORIDE
  2. VALACYCLOVIR [Concomitant]
     Active Substance: VALACYCLOVIR HYDROCHLORIDE
  3. PENTASA [Concomitant]
     Active Substance: MESALAMINE
  4. SPIRONOLACTONE. [Concomitant]
     Active Substance: SPIRONOLACTONE
  5. ALPRAZOLAM. [Concomitant]
     Active Substance: ALPRAZOLAM
  6. ERGOCALCIFEROL. [Concomitant]
     Active Substance: ERGOCALCIFEROL
  7. ACETAMINOPHEN. [Concomitant]
     Active Substance: ACETAMINOPHEN
  8. ZYRTEC [Concomitant]
     Active Substance: CETIRIZINE HYDROCHLORIDE
  9. EPINEPHRINE PEN [Concomitant]
  10. FUROSEMIDE. [Concomitant]
     Active Substance: FUROSEMIDE
  11. METHENAMINE HIPPURATE. [Concomitant]
     Active Substance: METHENAMINE HIPPURATE
  12. DICYCLOMINE [Concomitant]
     Active Substance: DICYCLOMINE HYDROCHLORIDE
  13. FORTEO [Concomitant]
     Active Substance: TERIPARATIDE
  14. LYRICA [Concomitant]
     Active Substance: PREGABALIN
  15. CYANOCOBALAMIN. [Concomitant]
     Active Substance: CYANOCOBALAMIN
  16. TYSABRI [Concomitant]
     Active Substance: NATALIZUMAB
  17. TAGAMET [Concomitant]
     Active Substance: CIMETIDINE
  18. BUDESONIDE 3MG CAPSULE [Suspect]
     Active Substance: BUDESONIDE
     Indication: CROHN^S DISEASE
     Dosage: ?          QUANTITY:2 DF DOSAGE FORM;?
     Route: 048

REACTIONS (7)
  - Angioedema [None]
  - Dysgeusia [None]
  - Fatigue [None]
  - Renal disorder [None]
  - Headache [None]
  - Chromaturia [None]
  - Reaction to excipient [None]

NARRATIVE: CASE EVENT DATE: 201810
